FAERS Safety Report 7613235-1 (Version None)
Quarter: 2011Q3

REPORT INFORMATION
  Report Type: 
  Country: None (occurrence: None)
  Receive Date: 20110708
  Receipt Date: 20110629
  Transmission Date: 20111222
  Serious: Yes (Other)
  Sender: FDA-Public Use
  Company Number: 20110499

PATIENT
  Age: 20 Year
  Sex: Female

DRUGS (1)
  1. VENOFER [Suspect]
     Indication: IRON DEFICIENCY
     Dosage: INTRAVENOUS
     Route: 042
     Dates: end: 20050509

REACTIONS (9)
  - OEDEMA PERIPHERAL [None]
  - MUSCULAR WEAKNESS [None]
  - JOINT RANGE OF MOTION DECREASED [None]
  - TOXICITY TO VARIOUS AGENTS [None]
  - INFUSION SITE PAIN [None]
  - PAIN IN EXTREMITY [None]
  - RASH ERYTHEMATOUS [None]
  - SKIN DISCOLOURATION [None]
  - INJECTION SITE EXTRAVASATION [None]
